FAERS Safety Report 14913299 (Version 1)
Quarter: 2018Q2

REPORT INFORMATION
  Report Type: Spontaneous
  Country: GB (occurrence: GB)
  Receive Date: 20180518
  Receipt Date: 20180518
  Transmission Date: 20180711
  Serious: Yes (Other)
  Sender: FDA-Public Use
  Company Number: PHHY2018GB002418

PATIENT
  Age: 55 Year
  Sex: Female
  Weight: 68.48 kg

DRUGS (1)
  1. CLARITHROMYCIN SANDOZ [Suspect]
     Active Substance: CLARITHROMYCIN
     Indication: COUGH
     Dosage: 500 MG, UNK
     Route: 048
     Dates: start: 20180214, end: 20180218

REACTIONS (4)
  - Swelling [Unknown]
  - Abdominal pain [Unknown]
  - Pain [Unknown]
  - Back pain [Unknown]

NARRATIVE: CASE EVENT DATE: 20180215
